FAERS Safety Report 22400500 (Version 2)
Quarter: 2024Q4

REPORT INFORMATION
  Report Type: Spontaneous
  Country: BR (occurrence: BR)
  Receive Date: 20230602
  Receipt Date: 20241203
  Transmission Date: 20250115
  Serious: Yes (Death, Hospitalization)
  Sender: BAYER HEALTHCARE PHARMACEUTICALS INC.
  Company Number: BR-BAYER-2023A074995

PATIENT
  Age: 79 Year
  Sex: Female

DRUGS (1)
  1. NEXAVAR [Suspect]
     Active Substance: SORAFENIB
     Indication: Hepatic neoplasm
     Dosage: UNK
     Dates: start: 20221215

REACTIONS (4)
  - Pain [Fatal]
  - Lung disorder [Fatal]
  - Colostomy [Fatal]
  - Coma [Fatal]

NARRATIVE: CASE EVENT DATE: 20230301
